FAERS Safety Report 8012428-1 (Version None)
Quarter: 2011Q4

REPORT INFORMATION
  Report Type: 
  Country: None (occurrence: None)
  Receive Date: 20111228
  Receipt Date: 20111222
  Transmission Date: 20120403
  Serious: Yes (Hospitalization)
  Sender: FDA-Public Use
  Company Number: SE-ROCHE-1025371

PATIENT

DRUGS (2)
  1. AVASTIN [Suspect]
     Indication: COLORECTAL CANCER METASTATIC
     Dosage: INDUCTION PHASE
     Dates: start: 20111215
  2. XELODA [Suspect]
     Indication: COLORECTAL CANCER METASTATIC
     Dosage: INDUCTION PHASE
     Dates: start: 20111215

REACTIONS (1)
  - ELECTROCARDIOGRAM ABNORMAL [None]
